FAERS Safety Report 6731621-9 (Version None)
Quarter: 2010Q2

REPORT INFORMATION
  Report Type: 
  Country: None (occurrence: None)
  Receive Date: 20100519
  Receipt Date: 20100416
  Transmission Date: 20101027
  Serious: Yes (Other)
  Sender: FDA-Public Use
  Company Number: US-BAYER-201019373NA

PATIENT
  Age: 68 Year
  Sex: Female

DRUGS (15)
  1. BETASERON [Suspect]
     Indication: MULTIPLE SCLEROSIS
     Dosage: AS USED: 4 MIU
     Route: 058
     Dates: start: 20100126, end: 20100301
  2. BETASERON [Suspect]
     Dosage: TOTAL DAILY DOSE: 6 MIU
     Route: 058
     Dates: start: 20100301
  3. BETASERON [Suspect]
     Dosage: TOTAL DAILY DOSE: 6 MIU
     Route: 058
     Dates: start: 20100301
  4. BETASERON [Suspect]
     Dosage: AS USED: 8 MIU
     Route: 058
     Dates: start: 20100415
  5. OXYGEN [Concomitant]
     Dosage: 24/7
     Dates: start: 19950101
  6. OXYGEN [Concomitant]
     Dosage: AT NIGHT ONLY
  7. PREVASTAIN [Concomitant]
  8. GABAPENTIN [Concomitant]
  9. FIBER THERAPY [Concomitant]
  10. STOOL SOFTENER [Concomitant]
  11. NABUMETONE [Concomitant]
  12. BACLOFEN [Concomitant]
  13. FLUDROCORTISONES [Concomitant]
  14. SYNTHROID [Concomitant]
  15. ACTOPLUS MET [Concomitant]

REACTIONS (2)
  - COUGH [None]
  - DYSPNOEA [None]
